FAERS Safety Report 22243871 (Version 2)
Quarter: 2025Q1

REPORT INFORMATION
  Report Type: Report from Study
  Country: BR (occurrence: BR)
  Receive Date: 20230424
  Receipt Date: 20250203
  Transmission Date: 20250409
  Serious: No
  Sender: CELLTRION
  Company Number: BR-CELLTRION INC.-2023BR008225

PATIENT

DRUGS (3)
  1. INFLIXIMAB-DYYB [Suspect]
     Active Substance: INFLIXIMAB-DYYB
     Indication: Rheumatoid arthritis
     Route: 042
     Dates: start: 20230126
  2. PREDNISONE [Concomitant]
     Active Substance: PREDNISONE
  3. MELOXICAM [Concomitant]
     Active Substance: MELOXICAM

REACTIONS (3)
  - Illness [Unknown]
  - Heart rate increased [Unknown]
  - Drug ineffective [Unknown]
